FAERS Safety Report 26096142 (Version 2)
Quarter: 2025Q4

REPORT INFORMATION
  Report Type: Spontaneous
  Country: IN (occurrence: IN)
  Receive Date: 20251127
  Receipt Date: 20251217
  Transmission Date: 20260117
  Serious: Yes (Death, Hospitalization, Other)
  Sender: ACCORD
  Company Number: IN-Accord-514286

PATIENT
  Age: 8 Decade
  Sex: Female

DRUGS (8)
  1. BORTEZOMIB [Suspect]
     Active Substance: BORTEZOMIB
     Indication: Monoclonal gammopathy
     Dosage: DAYS 1 AND 4 (1 CYCLE)?PULSE THERAPY AT RELAPSE
  2. DEXAMETHASONE [Suspect]
     Active Substance: DEXAMETHASONE
     Indication: Monoclonal gammopathy
     Route: 048
  3. CARFILZOMIB [Suspect]
     Active Substance: CARFILZOMIB
     Indication: Monoclonal gammopathy
     Route: 042
  4. THALIDOMIDE [Suspect]
     Active Substance: THALIDOMIDE
     Indication: Monoclonal gammopathy
     Dosage: CONTINUED THROUGHOUT RELAPSE?TOPPED LATER DUE TO CLINICAL DETERIORATION
     Route: 048
  5. BORTEZOMIB [Suspect]
     Active Substance: BORTEZOMIB
     Indication: Glomerulonephritis
     Dosage: DAYS 1 AND 4 (1 CYCLE)?PULSE THERAPY AT RELAPSE
  6. CARFILZOMIB [Suspect]
     Active Substance: CARFILZOMIB
     Indication: Glomerulonephritis
     Route: 042
  7. THALIDOMIDE [Suspect]
     Active Substance: THALIDOMIDE
     Indication: Glomerulonephritis
     Dosage: CONTINUED THROUGHOUT RELAPSE?TOPPED LATER DUE TO CLINICAL DETERIORATION
     Route: 048
  8. DEXAMETHASONE [Suspect]
     Active Substance: DEXAMETHASONE
     Indication: Monoclonal gammopathy

REACTIONS (3)
  - Infection [Fatal]
  - Septic shock [Fatal]
  - Pneumonia [Fatal]
